FAERS Safety Report 19818089 (Version 1)
Quarter: 2021Q3

REPORT INFORMATION
  Report Type: Other
  Country: RU (occurrence: RU)
  Receive Date: 20210911
  Receipt Date: 20210911
  Transmission Date: 20211014
  Serious: Yes (Hospitalization)
  Sender: FDA-Public Use
  Company Number: RU-ROCHE-2905644

PATIENT
  Age: 37 Year
  Sex: Female
  Weight: 84 kg

DRUGS (5)
  1. OCRELIZUMAB. [Suspect]
     Active Substance: OCRELIZUMAB
     Indication: RELAPSING-REMITTING MULTIPLE SCLEROSIS
     Dosage: ON 05/MAR/2021, DOSE LAST STUDY DRUG ADMIN PRIOR AE AND SAE WAS 600 MG. TOTAL VOLUME PRIOR SAE WAS 5
     Route: 042
     Dates: start: 20200228
  2. INSULIN LISPRO [Concomitant]
     Active Substance: INSULIN LISPRO
     Dosage: MEDICATION DOSE 20 U (UNIT)
     Route: 058
  3. VITAMINE D [Concomitant]
     Active Substance: CHOLECALCIFEROL
     Dosage: MEDICATION DOSE 2000 U (UNIT)
     Route: 048
     Dates: start: 20200901
  4. INSULIN DEGLUDEC [Concomitant]
     Active Substance: INSULIN DEGLUDEC
     Dosage: MEDICATION DOSE 30 U (UNIT)
     Route: 058
  5. NATALIZUMAB [Concomitant]
     Active Substance: NATALIZUMAB

REACTIONS (1)
  - Bartholin^s abscess [Recovered/Resolved]

NARRATIVE: CASE EVENT DATE: 20210811
